FAERS Safety Report 10235043 (Version 1)
Quarter: 2014Q2

REPORT INFORMATION
  Report Type: Spontaneous
  Country: GB (occurrence: GB)
  Receive Date: 20140613
  Receipt Date: 20140613
  Transmission Date: 20141212
  Serious: Yes (Death)
  Sender: FDA-Public Use
  Company Number: PHFR2014GB004176

PATIENT
  Age: 62 Year
  Sex: Female

DRUGS (3)
  1. NEORAL [Suspect]
     Indication: IMMUNOSUPPRESSION
     Dosage: UNK (50 MG CAPSULE, 30)
  2. NEORAL [Suspect]
     Dosage: UNK (25 MG CAPSULE, 30)
  3. PREDNISOLONE [Suspect]
     Indication: IMMUNOSUPPRESSION
     Dosage: UNK (5 MG TABLET, 28)

REACTIONS (1)
  - Death [Fatal]
